FAERS Safety Report 18254826 (Version 2)
Quarter: 2020Q3

REPORT INFORMATION
  Report Type: Report from Study
  Country: TW (occurrence: TW)
  Receive Date: 20200910
  Receipt Date: 20200916
  Transmission Date: 20201103
  Serious: Yes (Hospitalization)
  Sender: FDA-Public Use
  Company Number: TW-CELGENEUS-TWN-20200804544

PATIENT
  Age: 68 Year
  Sex: Female
  Weight: 52.6 kg

DRUGS (18)
  1. OXALIPLATIN. [Suspect]
     Active Substance: OXALIPLATIN
     Indication: ADENOCARCINOMA PANCREAS
     Route: 065
     Dates: start: 20200511
  2. TS?1 [Suspect]
     Active Substance: GIMERACIL\OTERACIL\TEGAFUR
     Indication: ADENOCARCINOMA PANCREAS
     Route: 065
     Dates: start: 20200511
  3. FLINA [Suspect]
     Active Substance: FLUTICASONE PROPIONATE
     Route: 065
     Dates: start: 20200810
  4. DEXLANSOPRAZOLE [Concomitant]
     Active Substance: DEXLANSOPRAZOLE
     Indication: GASTROOESOPHAGEAL REFLUX DISEASE
     Dosage: 60 MILLIGRAM
     Route: 048
     Dates: start: 20200810, end: 20200823
  5. MECOBALAMIN [Concomitant]
     Active Substance: METHYLCOBALAMIN
     Indication: HYPOAESTHESIA
     Dosage: 1500 MICROGRAM
     Route: 048
     Dates: start: 20200810, end: 20200823
  6. TRAMADOL. [Concomitant]
     Active Substance: TRAMADOL
     Indication: ABDOMINAL PAIN
     Route: 041
     Dates: start: 20200831, end: 20200831
  7. ACETYLCYSTEINE. [Concomitant]
     Active Substance: ACETYLCYSTEINE
     Indication: PRODUCTIVE COUGH
     Dosage: 1200 MILLIGRAM
     Route: 048
     Dates: start: 20200908, end: 20200910
  8. OXALIPLATIN. [Suspect]
     Active Substance: OXALIPLATIN
     Dosage: 262 MILLIGRAM
     Route: 065
     Dates: start: 20200810
  9. LORATADINE. [Concomitant]
     Active Substance: LORATADINE
     Indication: RHINITIS
     Route: 048
     Dates: start: 20200810, end: 20200823
  10. LORAZEPAM. [Concomitant]
     Active Substance: LORAZEPAM
     Indication: INSOMNIA
     Route: 048
     Dates: start: 20200810, end: 20200823
  11. TS?1 [Suspect]
     Active Substance: GIMERACIL\OTERACIL\TEGAFUR
     Dosage: 80 MILLIGRAM
     Route: 065
     Dates: start: 20200810
  12. ABRAXANE [Suspect]
     Active Substance: PACLITAXEL
     Indication: ADENOCARCINOMA PANCREAS
     Route: 065
     Dates: start: 20200511
  13. K?GLU [Concomitant]
     Indication: HYPOKALAEMIA
     Route: 041
     Dates: start: 20200902, end: 20200902
  14. ABRAXANE [Suspect]
     Active Substance: PACLITAXEL
     Dosage: 462 MILLIGRAM
     Route: 065
     Dates: start: 20200810
  15. SIMETHICONE (DIMETHICONE) [Concomitant]
     Active Substance: DIMETHICONE
     Indication: GASTRIC DISORDER
     Dosage: 120 MILLIGRAM
     Route: 048
     Dates: start: 20200817, end: 20200823
  16. POTASSIUM GLUCONATE [Concomitant]
     Active Substance: POTASSIUM GLUCONATE
     Indication: HYPOKALAEMIA
     Dosage: 8640 MILLIGRAM
     Route: 048
     Dates: start: 20200907, end: 20200908
  17. FLINA [Suspect]
     Active Substance: FLUTICASONE PROPIONATE
     Indication: ADENOCARCINOMA PANCREAS
     Route: 065
     Dates: start: 20200511
  18. DEXTROMETHORPHAN [Concomitant]
     Active Substance: DEXTROMETHORPHAN
     Indication: COUGH
     Dosage: 45 MILLIGRAM
     Route: 048
     Dates: start: 20200810, end: 20200823

REACTIONS (3)
  - Febrile neutropenia [Recovered/Resolved]
  - Pyrexia [Recovered/Resolved]
  - Enterocolitis [Recovered/Resolved]

NARRATIVE: CASE EVENT DATE: 20200814
